FAERS Safety Report 25543409 (Version 2)
Quarter: 2025Q3

REPORT INFORMATION
  Report Type: Spontaneous
  Country: EU (occurrence: EU)
  Receive Date: 20250711
  Receipt Date: 20250723
  Transmission Date: 20251020
  Serious: Yes (Hospitalization)
  Sender: BEIGENE
  Company Number: EU-BEIGENE-BGN-2025-011042

PATIENT
  Age: 44 Year

DRUGS (2)
  1. BRUKINSA [Suspect]
     Active Substance: ZANUBRUTINIB
     Indication: Waldenstrom^s macroglobulinaemia
  2. BRUKINSA [Suspect]
     Active Substance: ZANUBRUTINIB

REACTIONS (8)
  - Pyrexia [Unknown]
  - Headache [Unknown]
  - Vomiting [Unknown]
  - Musculoskeletal stiffness [Unknown]
  - Inflammatory marker increased [Recovering/Resolving]
  - Superior sagittal sinus thrombosis [Recovering/Resolving]
  - Hyperviscosity syndrome [Unknown]
  - Blood immunoglobulin M increased [Unknown]
